FAERS Safety Report 25416428 (Version 4)
Quarter: 2025Q3

REPORT INFORMATION
  Report Type: Spontaneous
  Country: US (occurrence: US)
  Receive Date: 20250610
  Receipt Date: 20250704
  Transmission Date: 20251021
  Serious: No
  Sender: ELI LILLY AND COMPANY
  Company Number: US-ELI_LILLY_AND_COMPANY-US202506006589

PATIENT
  Age: 63 Year
  Sex: Male

DRUGS (2)
  1. TALTZ [Suspect]
     Active Substance: IXEKIZUMAB
     Indication: Psoriasis
     Route: 065
     Dates: start: 202502
  2. TALTZ [Suspect]
     Active Substance: IXEKIZUMAB
     Indication: Psoriatic arthropathy
     Route: 058

REACTIONS (11)
  - Psoriasis [Unknown]
  - White blood cell count decreased [Unknown]
  - Pain [Unknown]
  - Muscle spasms [Unknown]
  - Abdominal pain [Unknown]
  - Diarrhoea [Unknown]
  - Psoriatic arthropathy [Unknown]
  - Arthropod bite [Unknown]
  - Gastrointestinal disorder [Unknown]
  - Food allergy [Unknown]
  - Influenza like illness [Unknown]
